FAERS Safety Report 8802130 (Version 1)
Quarter: 2012Q4

REPORT INFORMATION
  Report Type: 
  Country: US (occurrence: US)
  Receive Date: 20120921
  Receipt Date: 20120921
  Transmission Date: 20130627
  Serious: Yes (Hospitalization)
  Sender: FDA-Public Use
  Company Number: 2012SP002638

PATIENT
  Age: 59 Year
  Sex: Female
  Weight: 71 kg

DRUGS (13)
  1. LUNESTA [Suspect]
     Indication: INSOMNIA
     Route: 048
  2. LUNESTA [Suspect]
     Indication: INSOMNIA
     Route: 048
  3. LUNESTA [Suspect]
     Indication: INSOMNIA
     Route: 048
     Dates: start: 2009
  4. LIPITOR [Concomitant]
     Indication: PRODUCT USED FOR UNKNOWN INDICATION
     Dates: start: 2012
  5. NEURONTIN [Concomitant]
     Indication: SCIATICA
  6. OMEPRAZOLE [Concomitant]
     Indication: PRODUCT USED FOR UNKNOWN INDICATION
  7. VIT D [Concomitant]
     Indication: PRODUCT USED FOR UNKNOWN INDICATION
     Dates: start: 2012
  8. BABY ASPIRIN [Concomitant]
     Indication: PRODUCT USED FOR UNKNOWN INDICATION
  9. GEMFIBROZIL [Concomitant]
     Indication: BLOOD TRIGLYCERIDES INCREASED
  10. CLONAZEPAM [Concomitant]
     Indication: PRODUCT USED FOR UNKNOWN INDICATION
  11. BACLOPHEN [Concomitant]
     Indication: BACK PAIN
  12. BACLOPHEN [Concomitant]
     Indication: NECK PAIN
  13. PERCOCET /00867901/ [Concomitant]
     Indication: SCIATICA

REACTIONS (6)
  - Renal impairment [Recovered/Resolved]
  - Dehydration [Recovered/Resolved]
  - Drug ineffective [None]
  - Intentional overdose [Unknown]
  - Insomnia [Not Recovered/Not Resolved]
  - Weight increased [Unknown]
